FAERS Safety Report 6953000-1 (Version None)
Quarter: 2010Q3

REPORT INFORMATION
  Report Type: 
  Country: None (occurrence: None)
  Receive Date: 20100829
  Receipt Date: 20100520
  Transmission Date: 20110219
  Serious: No
  Sender: FDA-Public Use
  Company Number: US-ABBOTT-10P-163-0647047-00

PATIENT
  Sex: Female

DRUGS (7)
  1. NIASPAN [Suspect]
     Indication: BLOOD CHOLESTEROL INCREASED
     Route: 048
     Dates: start: 20100326, end: 20100426
  2. NIASPAN [Suspect]
     Indication: LOW DENSITY LIPOPROTEIN INCREASED
     Route: 048
     Dates: start: 20100426, end: 20100502
  3. NIASPAN [Suspect]
     Route: 048
     Dates: start: 20100520
  4. ASPIRIN [Concomitant]
     Indication: FLUSHING
     Dates: start: 20100326
  5. ASPIRIN [Concomitant]
     Indication: PROPHYLAXIS
  6. ADVAIR DISKUS 100/50 [Concomitant]
     Indication: HYPERSENSITIVITY
     Route: 055
  7. ADVAIR DISKUS 100/50 [Concomitant]
     Indication: SEASONAL ALLERGY

REACTIONS (10)
  - CONTUSION [None]
  - DYSPNOEA [None]
  - DYSPNOEA EXERTIONAL [None]
  - ERYTHEMA [None]
  - EYE SWELLING [None]
  - FLUSHING [None]
  - PRURITUS [None]
  - RASH [None]
  - SWELLING FACE [None]
  - URTICARIA [None]
